FAERS Safety Report 17203916 (Version 1)
Quarter: 2019Q4

REPORT INFORMATION
  Report Type: Spontaneous
  Country: US (occurrence: US)
  Receive Date: 20191226
  Receipt Date: 20191226
  Transmission Date: 20200122
  Serious: No
  Sender: FDA-Public Use
  Company Number: US-BAUSCH-BL-2019-064697

PATIENT
  Age: 36 Year
  Sex: Female

DRUGS (4)
  1. CLINDAMYCIN/BENZOYL PEROXIDE [Concomitant]
     Active Substance: BENZOYL PEROXIDE\CLINDAMYCIN PHOSPHATE
     Indication: ACNE
     Route: 061
  2. BENZAMYCIN [Suspect]
     Active Substance: BENZOYL PEROXIDE\ERYTHROMYCIN
     Indication: PRODUCT USE IN UNAPPROVED INDICATION
  3. ISOPROPYL ALCOHOL. [Suspect]
     Active Substance: ISOPROPYL ALCOHOL
     Indication: RASH
     Route: 061
     Dates: start: 201912, end: 201912
  4. BENZAMYCIN [Suspect]
     Active Substance: BENZOYL PEROXIDE\ERYTHROMYCIN
     Indication: RASH
     Route: 061
     Dates: start: 201912, end: 201912

REACTIONS (4)
  - Product preparation error [Unknown]
  - Burning sensation [Unknown]
  - Product use in unapproved indication [Unknown]
  - Product preparation error [Unknown]

NARRATIVE: CASE EVENT DATE: 2019
